FAERS Safety Report 10272497 (Version 1)
Quarter: 2014Q2

REPORT INFORMATION
  Report Type: Spontaneous
  Country: US (occurrence: None)
  Receive Date: 20140627
  Receipt Date: 20140627
  Transmission Date: 20141212
  Serious: Yes (Other)
  Sender: FDA-Public Use
  Company Number: US-H14001-14-00093

PATIENT
  Age: 32 Year
  Sex: Female

DRUGS (4)
  1. AUGMENTIN [Suspect]
     Indication: PRODUCT USED FOR UNKNOWN INDICATION
  2. FLUCONAZOLE [Suspect]
     Indication: PRODUCT USED FOR UNKNOWN INDICATION
  3. GEMCITABINE (GEMCITABINE) [Concomitant]
  4. BORTEZOMIB (BORTEZOMIB) [Concomitant]

REACTIONS (1)
  - Liver injury [None]
